FAERS Safety Report 4893405-6 (Version None)
Quarter: 2006Q1

REPORT INFORMATION
  Report Type: 
  Country: None (occurrence: None)
  Receive Date: 20060125
  Receipt Date: 20060125
  Transmission Date: 20060701
  Serious: Yes (Hospitalization, Other)
  Sender: FDA-Public Use
  Company Number: None

PATIENT
  Sex: Female
  Weight: 60 kg

DRUGS (5)
  1. CYCLOPHOSPHAMIDE [Suspect]
     Indication: HAEMATOPOIETIC NEOPLASM
     Dosage: SEE IMAGE
     Dates: start: 20040817
  2. FLUDARABINE PHOSPHATE [Suspect]
     Dosage: SEE IMAGE
  3. G-CSF [Suspect]
     Dosage: SEE IMAGE
  4. METHOTREXATE [Suspect]
     Dosage: SEE IMAGE
  5. ALLOPURINOL [Suspect]

REACTIONS (10)
  - BRAIN STEM SYNDROME [None]
  - DIARRHOEA [None]
  - DYSPNOEA [None]
  - LUNG DISORDER [None]
  - LUNG INFILTRATION [None]
  - LUNG NEOPLASM [None]
  - NAUSEA [None]
  - PRODUCTIVE COUGH [None]
  - PYREXIA [None]
  - VOMITING [None]
